FAERS Safety Report 20171086 (Version 3)
Quarter: 2022Q3

REPORT INFORMATION
  Report Type: Other
  Country: SG (occurrence: SG)
  Receive Date: 20211210
  Receipt Date: 20220824
  Transmission Date: 20221027
  Serious: Yes (Other)
  Sender: FDA-Public Use
  Company Number: SG-ASTELLAS-2021US047357

PATIENT
  Age: 50 Year
  Sex: Female

DRUGS (17)
  1. TACROLIMUS [Suspect]
     Active Substance: TACROLIMUS
     Indication: Renal transplant
     Dosage: UNK UNK, UNKNOWN FREQ.
     Route: 065
  2. TACROLIMUS [Suspect]
     Active Substance: TACROLIMUS
     Dosage: UNK UNK, UNKNOWN FREQ. (TACROLIMUS DOSE HALVED)
     Route: 065
  3. AMPHOTERICIN B [Suspect]
     Active Substance: AMPHOTERICIN B
     Indication: Fungal infection
     Route: 042
     Dates: start: 20200312
  4. AMPHOTERICIN B [Suspect]
     Active Substance: AMPHOTERICIN B
     Indication: Lung disorder
  5. PREDNISOLONE [Suspect]
     Active Substance: PREDNISOLONE
     Indication: Renal transplant
     Route: 065
  6. VORICONAZOLE [Suspect]
     Active Substance: VORICONAZOLE
     Indication: Fungal infection
     Dosage: 6 MG/KG, EVERY 12 HOURS (FOR 1 DAY)
     Route: 042
     Dates: start: 20200312
  7. VORICONAZOLE [Suspect]
     Active Substance: VORICONAZOLE
     Route: 042
  8. VORICONAZOLE [Suspect]
     Active Substance: VORICONAZOLE
     Dosage: 7-8 MG/KG 12 HOURLY
     Route: 042
  9. VORICONAZOLE [Suspect]
     Active Substance: VORICONAZOLE
     Route: 042
  10. VORICONAZOLE [Suspect]
     Active Substance: VORICONAZOLE
     Route: 042
  11. MYCOPHENOLIC ACID [Suspect]
     Active Substance: MYCOPHENOLIC ACID
     Indication: Renal transplant
     Route: 065
     Dates: end: 202003
  12. MYCOPHENOLIC ACID [Suspect]
     Active Substance: MYCOPHENOLIC ACID
     Dosage: 500 MG IN MORNING AND 250 MG IN EVENING, TWICE DAILY(DOSE REDUCED)
     Route: 065
     Dates: start: 202003, end: 2020
  13. AMOXICILLIN\CLAVULANATE POTASSIUM [Concomitant]
     Active Substance: AMOXICILLIN\CLAVULANATE POTASSIUM
     Indication: Prophylaxis
     Dosage: UNK UNK, UNKNOWN FREQ.
     Route: 065
  14. ISAVUCONAZOLE [Concomitant]
     Active Substance: ISAVUCONAZOLE
     Indication: Evidence based treatment
     Dosage: UNK UNK, UNKNOWN FREQ.
     Route: 042
     Dates: start: 2020
  15. PENTAMIDINE [Concomitant]
     Active Substance: PENTAMIDINE
     Indication: Prophylaxis
     Dosage: UNK UNK, MONTHLY (NEBULISED)
     Route: 065
     Dates: start: 201910
  16. VALGANCICLOVIR [Concomitant]
     Active Substance: VALGANCICLOVIR
     Indication: Prophylaxis
     Dosage: UNK UNK, UNKNOWN FREQ.
     Route: 065
     Dates: start: 201910
  17. AMPHOTERICIN B [Concomitant]
     Active Substance: AMPHOTERICIN B
     Indication: Product used for unknown indication
     Dosage: UNK UNK, UNKNOWN FREQ.
     Route: 037

REACTIONS (16)
  - Pulmonary cavitation [Unknown]
  - Fungal infection [Recovered/Resolved]
  - Cerebral artery thrombosis [Unknown]
  - Thrombophlebitis [Unknown]
  - Internal capsule infarction [Unknown]
  - Acute kidney injury [Unknown]
  - Electrolyte imbalance [Unknown]
  - Urinary retention [Recovered/Resolved]
  - Urinary tract infection [Recovered/Resolved]
  - Asthenia [Unknown]
  - Fungal infection [Unknown]
  - Central nervous system lesion [Unknown]
  - Neurological decompensation [Recovered/Resolved]
  - Central nervous system fungal infection [Recovered/Resolved]
  - Glomerulonephritis chronic [Unknown]
  - Drug ineffective [Unknown]

NARRATIVE: CASE EVENT DATE: 20200101
